FAERS Safety Report 15440203 (Version 1)
Quarter: 2018Q3

REPORT INFORMATION
  Report Type: Spontaneous
  Country: US (occurrence: US)
  Receive Date: 20180928
  Receipt Date: 20180928
  Transmission Date: 20181010
  Serious: No
  Sender: FDA-Public Use
  Company Number: US-BAYER-2018-182241

PATIENT
  Sex: Female

DRUGS (6)
  1. ESTRADIOL. [Suspect]
     Active Substance: ESTRADIOL
     Dosage: UNK
     Route: 062
  2. HYDROCHLOROTHIAZIDE. [Concomitant]
     Active Substance: HYDROCHLOROTHIAZIDE
  3. MELOXICAM. [Concomitant]
     Active Substance: MELOXICAM
  4. AMBIEN [Concomitant]
     Active Substance: ZOLPIDEM TARTRATE
  5. ESTRADIOL. [Suspect]
     Active Substance: ESTRADIOL
     Route: 062
  6. ESTRADIOL. [Suspect]
     Active Substance: ESTRADIOL
     Dosage: UNK
     Route: 062

REACTIONS (2)
  - Drug ineffective [Unknown]
  - Hot flush [Unknown]
